FAERS Safety Report 22305908 (Version 3)
Quarter: 2023Q2

REPORT INFORMATION
  Report Type: Spontaneous
  Country: US (occurrence: US)
  Receive Date: 20230511
  Receipt Date: 20230629
  Transmission Date: 20230722
  Serious: Yes (Hospitalization, Other)
  Sender: FDA-Public Use
  Company Number: US-002147023-NVSC2023US103512

PATIENT
  Sex: Female

DRUGS (2)
  1. XIIDRA [Suspect]
     Active Substance: LIFITEGRAST
     Indication: Dry eye
     Dosage: UNK (FOR 1.5 YEARS)
     Route: 065
  2. XIIDRA [Suspect]
     Active Substance: LIFITEGRAST
     Dosage: UNK
     Route: 065

REACTIONS (4)
  - Dehydration [Unknown]
  - Cataract [Unknown]
  - Atrial fibrillation [Unknown]
  - Product packaging quantity issue [Unknown]
